FAERS Safety Report 7581895-X (Version None)
Quarter: 2011Q2

REPORT INFORMATION
  Report Type: 
  Country: None (occurrence: None)
  Receive Date: 20110629
  Receipt Date: 20101230
  Transmission Date: 20111010
  Serious: Yes (Hospitalization)
  Sender: FDA-Public Use
  Company Number: PHHY2010TW89317

PATIENT

DRUGS (1)
  1. EXJADE [Suspect]

REACTIONS (5)
  - REFLUX OESOPHAGITIS [None]
  - CONVULSION [None]
  - DIARRHOEA [None]
  - POSTERIOR REVERSIBLE ENCEPHALOPATHY SYNDROME [None]
  - FEBRILE NEUTROPENIA [None]
